FAERS Safety Report 15427107 (Version 17)
Quarter: 2019Q4

REPORT INFORMATION
  Report Type: Spontaneous
  Country: US (occurrence: US)
  Receive Date: 20180925
  Receipt Date: 20191210
  Transmission Date: 20200122
  Serious: Yes (Hospitalization, Other)
  Sender: FDA-Public Use
  Company Number: US-ACTELION-A-US2018-179271

PATIENT
  Age: 49 Year
  Sex: Female
  Weight: 47.17 kg

DRUGS (17)
  1. SYNTHROID [Concomitant]
     Active Substance: LEVOTHYROXINE SODIUM
     Dosage: UNK
  2. ELIQUIS [Concomitant]
     Active Substance: APIXABAN
     Dosage: UNK
  3. LASIX [Concomitant]
     Active Substance: FUROSEMIDE
     Dosage: UNK
  4. VELETRI [Suspect]
     Active Substance: EPOPROSTENOL
     Indication: PULMONARY HYPERTENSION
     Dosage: 56 NG/KG, PER MIN
     Route: 042
     Dates: start: 201502
  5. VELETRI [Suspect]
     Active Substance: EPOPROSTENOL
     Dosage: 76 NG/KG, PER MIN
     Route: 042
  6. OPSUMIT [Suspect]
     Active Substance: MACITENTAN
     Indication: PULMONARY HYPERTENSION
     Dosage: 10 MG, QD
     Route: 048
     Dates: start: 201412, end: 201906
  7. NEURONTIN [Concomitant]
     Active Substance: GABAPENTIN
     Dosage: UNK
  8. VELETRI [Suspect]
     Active Substance: EPOPROSTENOL
     Dosage: 58 NG/KG, PER MIN
     Route: 042
  9. WARFARIN [Concomitant]
     Active Substance: WARFARIN
     Dosage: UNK
  10. ALDACTONE [Concomitant]
     Active Substance: SPIRONOLACTONE
     Dosage: UNK
  11. VELETRI [Suspect]
     Active Substance: EPOPROSTENOL
     Dosage: 48 NG/KG, PER MIN
     Route: 042
  12. REVATIO [Concomitant]
     Active Substance: SILDENAFIL CITRATE
  13. VELETRI [Suspect]
     Active Substance: EPOPROSTENOL
     Dosage: 33 NG/KG, PER MIN
     Route: 042
  14. IRON [Concomitant]
     Active Substance: IRON
     Dosage: UNK
  15. BUMEX [Concomitant]
     Active Substance: BUMETANIDE
     Dosage: UNK
  16. ADEMPAS [Concomitant]
     Active Substance: RIOCIGUAT
     Dosage: UNK
  17. LYRICA [Concomitant]
     Active Substance: PREGABALIN

REACTIONS (20)
  - Complication associated with device [Unknown]
  - Oedema peripheral [Recovering/Resolving]
  - Abdominal distension [Not Recovered/Not Resolved]
  - Cardiac failure congestive [Recovering/Resolving]
  - Central venous catheterisation [Recovered/Resolved]
  - Device occlusion [Recovered/Resolved]
  - Fluid overload [Not Recovered/Not Resolved]
  - Nasopharyngitis [Unknown]
  - Cough [Unknown]
  - Device related thrombosis [Recovered/Resolved]
  - Fluid retention [Not Recovered/Not Resolved]
  - Right ventricular failure [Not Recovered/Not Resolved]
  - Pulmonary hypertension [Not Recovered/Not Resolved]
  - Balloon atrial septostomy [Recovered/Resolved]
  - Flushing [Unknown]
  - Transplant evaluation [Unknown]
  - Dyspnoea [Recovering/Resolving]
  - Oedema [Unknown]
  - Device issue [Unknown]
  - Device alarm issue [Recovered/Resolved]

NARRATIVE: CASE EVENT DATE: 20180916
